FAERS Safety Report 5968351-7 (Version None)
Quarter: 2008Q4

REPORT INFORMATION
  Report Type: 
  Country: None (occurrence: None)
  Receive Date: 20081126
  Receipt Date: 20081120
  Transmission Date: 20090506
  Serious: Yes (Other)
  Sender: FDA-Public Use
  Company Number: US-BAYER-200829980NA

PATIENT
  Age: 47 Year
  Sex: Female
  Weight: 73 kg

DRUGS (3)
  1. YAZ [Suspect]
     Indication: HOT FLUSH
     Route: 048
     Dates: start: 20080701
  2. INSULIN [Concomitant]
     Indication: DRUG USE FOR UNKNOWN INDICATION
  3. LEVOXYL [Concomitant]
     Indication: DRUG USE FOR UNKNOWN INDICATION

REACTIONS (1)
  - BLOOD GLUCOSE INCREASED [None]
